FAERS Safety Report 14659796 (Version 3)
Quarter: 2018Q3

REPORT INFORMATION
  Report Type: Spontaneous
  Country: JP (occurrence: JP)
  Receive Date: 20180320
  Receipt Date: 20180719
  Transmission Date: 20181010
  Serious: Yes (Death, Hospitalization, Other)
  Sender: FDA-Public Use
  Company Number: JP-JNJFOC-20180317987

PATIENT
  Age: 49 Year
  Sex: Male
  Weight: 66.8 kg

DRUGS (7)
  1. REMODULIN [Suspect]
     Active Substance: TREPROSTINIL
     Indication: PULMONARY ARTERIAL HYPERTENSION
     Route: 058
  2. REMODULIN [Suspect]
     Active Substance: TREPROSTINIL
     Indication: PULMONARY ARTERIAL HYPERTENSION
     Route: 058
     Dates: start: 20161125, end: 20180117
  3. REVATIO [Concomitant]
     Active Substance: SILDENAFIL CITRATE
     Route: 048
     Dates: start: 200808
  4. REMODULIN [Suspect]
     Active Substance: TREPROSTINIL
     Indication: PULMONARY ARTERIAL HYPERTENSION
     Route: 058
  5. TRAMADOL HYDROCHLORIDE. [Suspect]
     Active Substance: TRAMADOL HYDROCHLORIDE
     Indication: PAIN
     Route: 048
     Dates: start: 201612, end: 2017
  6. ADCIRCA [Concomitant]
     Active Substance: TADALAFIL
     Route: 048
     Dates: start: 201005
  7. VOLIBRIS [Concomitant]
     Active Substance: AMBRISENTAN
     Route: 048
     Dates: start: 201005

REACTIONS (13)
  - Death [Fatal]
  - Arthralgia [Unknown]
  - Heart rate increased [Unknown]
  - Pain [Unknown]
  - Pulmonary oedema [Unknown]
  - Nausea [Recovered/Resolved]
  - Headache [Unknown]
  - Deafness unilateral [Unknown]
  - Platelet count decreased [Unknown]
  - Gait disturbance [Unknown]
  - Hypoaesthesia [Unknown]
  - Flushing [Unknown]
  - Dysgeusia [Unknown]

NARRATIVE: CASE EVENT DATE: 201612
